FAERS Safety Report 10543617 (Version 4)
Quarter: 2015Q2

REPORT INFORMATION
  Report Type: Spontaneous
  Country: US (occurrence: US)
  Receive Date: 20141027
  Receipt Date: 20150525
  Transmission Date: 20150821
  Serious: Yes (Hospitalization)
  Sender: FDA-Public Use
  Company Number: US-JNJFOC-20141015903

PATIENT
  Age: 53 Year
  Sex: Male
  Weight: 84.82 kg

DRUGS (4)
  1. METHOTREXATE [Concomitant]
     Active Substance: METHOTREXATE
     Indication: IRIDOCYCLITIS
     Dosage: WEEKLY FOR YEARS
     Route: 065
  2. FOLIC ACID. [Concomitant]
     Active Substance: FOLIC ACID
     Dosage: FOR YEARS
     Route: 065
  3. REMICADE [Suspect]
     Active Substance: INFLIXIMAB
     Indication: IRIDOCYCLITIS
     Route: 042
     Dates: start: 20130411, end: 20141013
  4. PRAVASTATIN [Concomitant]
     Active Substance: PRAVASTATIN\PRAVASTATIN SODIUM
     Dosage: YEARS
     Route: 065

REACTIONS (3)
  - Arthralgia [Recovered/Resolved]
  - Product use issue [Unknown]
  - Sepsis [Unknown]

NARRATIVE: CASE EVENT DATE: 20130411
